FAERS Safety Report 11246195 (Version 1)
Quarter: 2015Q3

REPORT INFORMATION
  Report Type: Spontaneous
  Country: US (occurrence: None)
  Receive Date: 20150706
  Receipt Date: 20150706
  Transmission Date: 20151125
  Serious: No
  Sender: FDA-Public Use
  Company Number: None

PATIENT

DRUGS (1)
  1. DEXTROAMPHETAMINE SULFATE. [Suspect]
     Active Substance: DEXTROAMPHETAMINE SULFATE

REACTIONS (7)
  - Basedow^s disease [None]
  - Inability to afford medication [None]
  - Autonomic nervous system imbalance [None]
  - Sinus node dysfunction [None]
  - Mitral valve prolapse [None]
  - Intervertebral disc degeneration [None]
  - Supraventricular extrasystoles [None]
